FAERS Safety Report 9486393 (Version 1)
Quarter: 2013Q3

REPORT INFORMATION
  Report Type: Spontaneous
  Country: IE (occurrence: IE)
  Receive Date: 20130829
  Receipt Date: 20130829
  Transmission Date: 20140515
  Serious: Yes (Hospitalization)
  Sender: FDA-Public Use
  Company Number: IE-AMGEN-IRLSP2013059353

PATIENT
  Age: 40 Year
  Sex: Female

DRUGS (3)
  1. VECTIBIX [Suspect]
     Indication: NEOPLASM MALIGNANT
     Dosage: 20 MG/ML, UNK (CONCENTRATE FOR SOLUTION FOR INF)
     Route: 042
  2. OXALIPLATIN [Suspect]
     Indication: NEOPLASM MALIGNANT
     Dosage: UNK
     Route: 042
  3. 5 FLUOROURACIL /00098801/ [Suspect]
     Indication: NEOPLASM MALIGNANT
     Dosage: UNK
     Route: 042

REACTIONS (1)
  - Colitis [Recovered/Resolved]
